FAERS Safety Report 4523526-9 (Version None)
Quarter: 2004Q4

REPORT INFORMATION
  Report Type: 
  Country: None (occurrence: None)
  Receive Date: 20041117
  Receipt Date: 20040802
  Transmission Date: 20050328
  Serious: Yes (Hospitalization)
  Sender: FDA-Public Use
  Company Number: DE-JNJFOC-20040800813

PATIENT
  Age: 79 Year
  Sex: Female

DRUGS (7)
  1. LEVOFLOXACIN [Suspect]
     Indication: PNEUMONIA
     Dosage: INTRAVENOUS
     Route: 042
     Dates: start: 20031217, end: 20031217
  2. LEVOFLOXACIN [Suspect]
     Indication: PNEUMONIA
     Dosage: 500 MG, INTRAVENOUS
     Route: 042
     Dates: start: 20031217, end: 20031217
  3. ZOFRAN (0NDANSETRON HYDROCHLORIDE) [Concomitant]
  4. RESTORIL [Concomitant]
  5. ATENOLOL [Concomitant]
  6. COLACE (DOCUSATE SODIUM) [Concomitant]
  7. PEPCID [Concomitant]

REACTIONS (1)
  - MYOCARDIAL INFARCTION [None]
